FAERS Safety Report 14713310 (Version 1)
Quarter: 2018Q2

REPORT INFORMATION
  Report Type: Spontaneous
  Country: FR (occurrence: FR)
  Receive Date: 20180404
  Receipt Date: 20180404
  Transmission Date: 20180711
  Serious: Yes (Other)
  Sender: FDA-Public Use
  Company Number: FR-SUN PHARMACEUTICAL INDUSTRIES LTD-2018RR-169280

PATIENT
  Age: 81 Year
  Sex: Female

DRUGS (8)
  1. EUPHON (CODEINE\HERBALS) [Suspect]
     Active Substance: CODEINE\HERBALS
     Indication: COUGH
     Dosage: (3)
     Route: 048
     Dates: start: 20180219
  2. DAFALGAN [Suspect]
     Active Substance: ACETAMINOPHEN
     Indication: PAIN
     Dosage: (3)
     Route: 048
     Dates: start: 20180219
  3. PARACETAMOL [Suspect]
     Active Substance: ACETAMINOPHEN
     Indication: PAIN
     Dosage: 975 MG
     Route: 048
     Dates: start: 20180219
  4. TRAMADOL (CHLORHYDRATE DE) [Suspect]
     Active Substance: TRAMADOL HYDROCHLORIDE
     Indication: PAIN
     Dosage: 112.5 MG
     Route: 048
     Dates: start: 20180219
  5. AMOXICILLINE BASE [Suspect]
     Active Substance: AMOXICILLIN
     Indication: INFECTION
     Dosage: 2 G
     Route: 048
     Dates: start: 20180219
  6. PREDNISOLONE. [Suspect]
     Active Substance: PREDNISOLONE
     Indication: RHINITIS
     Dosage: 60 MG
     Route: 048
     Dates: start: 20180219
  7. VOCADYS (ENOXOLONE\LIDOCAINE HYDROCHLORIDE\SISYMBRIUM OFFICINALE) [Suspect]
     Active Substance: ENOXOLONE\HERBALS\LIDOCAINE HYDROCHLORIDE
     Indication: OROPHARYNGEAL PAIN
     Dosage: ()
     Route: 065
     Dates: start: 20180126
  8. PIVALONE (TIXOCORTOL PIVALATE) [Suspect]
     Active Substance: TIXOCORTOL PIVALATE
     Indication: RHINITIS
     Dosage: (3)
     Route: 045
     Dates: start: 20180219

REACTIONS (2)
  - Ageusia [Recovered/Resolved]
  - Anosmia [Recovered/Resolved]

NARRATIVE: CASE EVENT DATE: 20180220
